FAERS Safety Report 7402953-6 (Version None)
Quarter: 2011Q1

REPORT INFORMATION
  Report Type: 
  Country: None (occurrence: None)
  Receive Date: 20110331
  Receipt Date: 20110322
  Transmission Date: 20110831
  Serious: Yes (Hospitalization)
  Sender: FDA-Public Use
  Company Number: JPI-P-014301

PATIENT
  Age: 81 Year
  Sex: Male

DRUGS (3)
  1. XYREM [Suspect]
     Indication: PRODUCT USED FOR UNKNOWN INDICATION
     Dosage: 3 GM (1.5 GM,2 IN 1 D),ORAL,  ORAL,  6 GM (3 GM,2 IN 1 D),ORAL, 3 GM (3 GM,1 IN 1 D),ORAL
     Route: 048
     Dates: start: 20050127
  2. XYREM [Suspect]
     Indication: PRODUCT USED FOR UNKNOWN INDICATION
     Dosage: 3 GM (1.5 GM,2 IN 1 D),ORAL,  ORAL,  6 GM (3 GM,2 IN 1 D),ORAL, 3 GM (3 GM,1 IN 1 D),ORAL
     Route: 048
     Dates: start: 20110318, end: 20110318
  3. XYREM [Suspect]
     Indication: PRODUCT USED FOR UNKNOWN INDICATION
     Dosage: 3 GM (1.5 GM,2 IN 1 D),ORAL,  ORAL,  6 GM (3 GM,2 IN 1 D),ORAL, 3 GM (3 GM,1 IN 1 D),ORAL
     Route: 048
     Dates: start: 20090720, end: 20110317

REACTIONS (6)
  - CONCUSSION [None]
  - HAEMORRHAGE [None]
  - DRUG DOSE OMISSION [None]
  - FALL [None]
  - HEAD INJURY [None]
  - CATAPLEXY [None]
